FAERS Safety Report 9945633 (Version 1)
Quarter: 2014Q1

REPORT INFORMATION
  Report Type: Report from Study
  Country: US (occurrence: US)
  Receive Date: 20140303
  Receipt Date: 20140303
  Transmission Date: 20141002
  Serious: No
  Sender: FDA-Public Use
  Company Number: US-ABBVIE-13P-163-1049588-00

PATIENT
  Age: 27 Year
  Sex: Female

DRUGS (3)
  1. HUMIRA [Suspect]
     Indication: CROHN^S DISEASE
     Dates: start: 20121212
  2. IRON [Concomitant]
     Indication: ANAEMIA
  3. IMURAN [Concomitant]
     Indication: ENZYME ACTIVITY ABNORMAL

REACTIONS (1)
  - Injection site pain [Recovered/Resolved]
